FAERS Safety Report 22642210 (Version 1)
Quarter: 2023Q2

REPORT INFORMATION
  Report Type: Other
  Country: FR (occurrence: FR)
  Receive Date: 20230626
  Receipt Date: 20230626
  Transmission Date: 20230721
  Serious: Yes (Hospitalization)
  Sender: FDA-Public Use
  Company Number: None

PATIENT

DRUGS (1)
  1. RUXOLITINIB [Suspect]
     Active Substance: RUXOLITINIB
     Indication: Still^s disease
     Dosage: UNK (2X/J)
     Route: 048

REACTIONS (1)
  - Cryptosporidiosis infection [Recovering/Resolving]

NARRATIVE: CASE EVENT DATE: 20230404
